FAERS Safety Report 9265637 (Version 1)
Quarter: 2013Q2

REPORT INFORMATION
  Report Type: Report from Study
  Country: US (occurrence: US)
  Receive Date: 20130501
  Receipt Date: 20130501
  Transmission Date: 20140414
  Serious: Yes (Hospitalization, Other)
  Sender: FDA-Public Use
  Company Number: US-ABBOTT-13P-163-1075972-00

PATIENT
  Age: 65 Year
  Sex: Male
  Weight: 93.98 kg

DRUGS (11)
  1. HUMIRA [Suspect]
     Indication: RHEUMATOID ARTHRITIS
     Route: 058
     Dates: start: 201212
  2. LANTUS [Concomitant]
     Indication: DIABETES MELLITUS
  3. METFORMIN/GLYBURIDE [Concomitant]
     Indication: DIABETES MELLITUS
  4. LOSARTAN [Concomitant]
     Indication: HYPERTENSION
  5. METHOTREXATE [Concomitant]
     Indication: RHEUMATOID ARTHRITIS
  6. FOLIC ACID [Concomitant]
     Indication: RHEUMATOID ARTHRITIS
  7. METOPROLOL [Concomitant]
     Indication: HYPERTENSION
  8. EFFIENT [Concomitant]
     Indication: THROMBOSIS IN DEVICE
     Dates: start: 201302
  9. EFFIENT [Concomitant]
     Indication: PROPHYLAXIS
  10. HYDROXYCHLOROQUINE [Concomitant]
     Indication: RHEUMATOID ARTHRITIS
  11. ATORVASTATIN [Concomitant]
     Indication: BLOOD CHOLESTEROL INCREASED

REACTIONS (5)
  - Coronary artery occlusion [Recovered/Resolved]
  - Coronary artery occlusion [Recovered/Resolved]
  - Chest pain [Recovered/Resolved]
  - Myocardial infarction [Recovered/Resolved]
  - Cardiac disorder [Unknown]
